FAERS Safety Report 21365691 (Version 1)
Quarter: 2022Q3

REPORT INFORMATION
  Report Type: Spontaneous
  Country: GB (occurrence: GB)
  Receive Date: 20220922
  Receipt Date: 20220922
  Transmission Date: 20221026
  Serious: Yes (Hospitalization)
  Sender: FDA-Public Use
  Company Number: GB-MYLANLABS-2022M1095251

PATIENT
  Age: 24 Year
  Sex: Female

DRUGS (7)
  1. VALGANCICLOVIR [Suspect]
     Active Substance: VALGANCICLOVIR
     Indication: Cytomegalovirus viraemia
     Dosage: UNK
     Route: 065
  2. ACYCLOVIR [Suspect]
     Active Substance: ACYCLOVIR
     Indication: Cytomegalovirus viraemia
     Dosage: UNK
     Route: 065
  3. METHYLPREDNISOLONE [Concomitant]
     Active Substance: METHYLPREDNISOLONE
     Indication: Still^s disease
     Dosage: 500 MILLIGRAM, TID (THE PATIENT RECEIVED INTRAVENOUS METHYLPREDNISOLONE 3X 500MG THEN 32MG DAILY)
     Route: 042
  4. METHYLPREDNISOLONE [Concomitant]
     Active Substance: METHYLPREDNISOLONE
     Dosage: 32 MILLIGRAM, QD (THE PATIENT RECEIVED INTRAVENOUS METHYLPREDNISOLONE 3X 500MG THEN 32MG DAILY)
     Route: 042
  5. METHYLPREDNISOLONE [Concomitant]
     Active Substance: METHYLPREDNISOLONE
     Dosage: 250 MILLIGRAM, TID (THE PATIENT RECEIVED INTRAVENOUS METHYLPREDNISOLONE 3X250MG)
     Route: 042
  6. ANAKINRA [Concomitant]
     Active Substance: ANAKINRA
     Indication: Still^s disease
     Dosage: 100 MILLIGRAM, BID
     Route: 042
  7. ANAKINRA [Concomitant]
     Active Substance: ANAKINRA
     Dosage: 100 MILLIGRAM, TID (THE PATIENT RECEIVED IV ANAKINRA 100MG THREE TIMES A DAY)
     Route: 042

REACTIONS (1)
  - Drug ineffective [Unknown]
